FAERS Safety Report 6216151-5 (Version None)
Quarter: 2009Q2

REPORT INFORMATION
  Report Type: 
  Country: None (occurrence: None)
  Receive Date: 20090605
  Receipt Date: 20090528
  Transmission Date: 20091009
  Serious: Yes (Hospitalization)
  Sender: FDA-Public Use
  Company Number: US-MYLANLABS-2009S1007229

PATIENT
  Age: 88 Year
  Sex: Male
  Weight: 74.84 kg

DRUGS (7)
  1. PROPOXYPHENE HYDROCHLORIDE AND ACETAMINOPHEN TAB [Suspect]
     Indication: BACK PAIN
     Route: 048
     Dates: start: 20090414, end: 20090415
  2. PROPOXYPHENE HYDROCHLORIDE AND ACETAMINOPHEN TAB [Suspect]
     Indication: MUSCULOSKELETAL CHEST PAIN
     Route: 048
     Dates: start: 20090414, end: 20090415
  3. PROPOXYPHENE HYDROCHLORIDE AND ACETAMINOPHEN TAB [Suspect]
     Route: 048
     Dates: start: 20090414, end: 20090415
  4. PROPOXYPHENE HYDROCHLORIDE AND ACETAMINOPHEN TAB [Suspect]
     Route: 048
     Dates: start: 20090414, end: 20090415
  5. CYCLOBENZAPRINE [Suspect]
     Indication: MUSCLE RELAXANT THERAPY
     Route: 048
  6. ARICEPT [Concomitant]
     Route: 048
     Dates: start: 20070101
  7. CYCLOBENZAPRINE [Concomitant]
     Route: 048

REACTIONS (5)
  - ANOREXIA [None]
  - ASTHENIA [None]
  - CONFUSIONAL STATE [None]
  - HALLUCINATION [None]
  - SEDATION [None]
